FAERS Safety Report 4283212-X (Version None)
Quarter: 2004Q1

REPORT INFORMATION
  Report Type: 
  Country: None (occurrence: None)
  Receive Date: 20040129
  Receipt Date: 20040121
  Transmission Date: 20041129
  Serious: Yes (Hospitalization)
  Sender: FDA-Public Use
  Company Number: 2004195701SE

PATIENT
  Age: 38 Year
  Sex: Female

DRUGS (1)
  1. DEPO-PROVERA [Suspect]
     Indication: CONTRACEPTION
     Dosage: 150 MG/3MONTHS
     Dates: start: 20030801, end: 20030801

REACTIONS (2)
  - INJECTION SITE ABSCESS [None]
  - STAPHYLOCOCCAL ABSCESS [None]
